FAERS Safety Report 5241392-3 (Version None)
Quarter: 2007Q1

REPORT INFORMATION
  Report Type: 
  Country: None (occurrence: None)
  Receive Date: 20070220
  Receipt Date: 20070208
  Transmission Date: 20070707
  Serious: Yes (Hospitalization, Other)
  Sender: FDA-Public Use
  Company Number: RO-NOVOPROD-260042

PATIENT
  Age: 44 Year
  Sex: Female
  Weight: 80 kg

DRUGS (7)
  1. NOVOSEVEN [Suspect]
     Indication: HAEMORRHAGE
     Dosage: 4.8 MG, BID
     Route: 042
  2. CEFUROXIM                          /00454602/ [Concomitant]
     Indication: PROPHYLAXIS
  3. METRONIDAZOL                       /00012501/ [Concomitant]
     Indication: PROPHYLAXIS
  4. FAMOTIDINE [Concomitant]
     Indication: PROPHYLAXIS AGAINST GASTROINTESTINAL ULCER
  5. FENTANYL [Concomitant]
  6. MIDAZOLAM HCL [Concomitant]
  7. NORADRENALINE [Concomitant]

REACTIONS (1)
  - GASTROINTESTINAL NECROSIS [None]
